FAERS Safety Report 7021467-9 (Version None)
Quarter: 2010Q3

REPORT INFORMATION
  Report Type: 
  Country: None (occurrence: None)
  Receive Date: 20100929
  Receipt Date: 20100922
  Transmission Date: 20110219
  Serious: Yes (Other)
  Sender: FDA-Public Use
  Company Number: BR-ELI_LILLY_AND_COMPANY-BR201009006108

PATIENT
  Sex: Female
  Weight: 207 kg

DRUGS (2)
  1. HUMALOG MIX 75/25 [Suspect]
     Dosage: 8 IU, OTHER
     Route: 065
  2. HUMALOG MIX 75/25 [Suspect]
     Dosage: 4 IU, OTHER
     Route: 065

REACTIONS (1)
  - BLOOD GLUCOSE INCREASED [None]
